FAERS Safety Report 9172863 (Version 1)
Quarter: 2013Q1

REPORT INFORMATION
  Report Type: Report from Study
  Country: US (occurrence: US)
  Receive Date: 20130319
  Receipt Date: 20130319
  Transmission Date: 20140127
  Serious: Yes (Other)
  Sender: FDA-Public Use
  Company Number: US-JNJFOC-20130307865

PATIENT
  Sex: Female
  Weight: 104.33 kg

DRUGS (2)
  1. SIMPONI [Suspect]
     Indication: RHEUMATOID ARTHRITIS
     Route: 058
     Dates: start: 2011
  2. SIMPONI [Suspect]
     Indication: RHEUMATOID ARTHRITIS
     Route: 058
     Dates: start: 20130304

REACTIONS (3)
  - Wound [Not Recovered/Not Resolved]
  - Wound drainage [Not Recovered/Not Resolved]
  - Pain [Not Recovered/Not Resolved]
